FAERS Safety Report 9434992 (Version 1)
Quarter: 2013Q3

REPORT INFORMATION
  Report Type: Report from Study
  Country: US (occurrence: US)
  Receive Date: 20130801
  Receipt Date: 20130801
  Transmission Date: 20140515
  Serious: No
  Sender: FDA-Public Use
  Company Number: PHEH2013US015990

PATIENT
  Sex: Female

DRUGS (9)
  1. TASIGNA [Suspect]
     Indication: CHRONIC MYELOID LEUKAEMIA
     Dosage: 300 MG, BID
     Dates: start: 20130206
  2. LISINOPRIL [Concomitant]
  3. ADVAIR [Concomitant]
  4. SINGULAIR [Concomitant]
  5. NAPROXEN [Concomitant]
  6. CLOBETASOL [Concomitant]
  7. CIPRO ^MILES^ [Concomitant]
  8. OXYBUTYNIN [Concomitant]
  9. CHEMOTHERAPEUTICS NOS [Concomitant]

REACTIONS (1)
  - Skin papilloma [Not Recovered/Not Resolved]
